FAERS Safety Report 6456490-6 (Version None)
Quarter: 2009Q4

REPORT INFORMATION
  Report Type: 
  Country: None (occurrence: None)
  Receive Date: 20091125
  Receipt Date: 20091120
  Transmission Date: 20100525
  Serious: Yes (Hospitalization)
  Sender: FDA-Public Use
  Company Number: FR-BRISTOL-MYERS SQUIBB COMPANY-14867295

PATIENT
  Age: 47 Year
  Sex: Female

DRUGS (2)
  1. REYATAZ [Suspect]
     Indication: HIV INFECTION
     Dosage: TAKEN 2 CAPS PER DAY
     Route: 048
     Dates: start: 20060726, end: 20081119
  2. TRUVADA [Suspect]
     Indication: HIV INFECTION
     Dosage: 1 DF= 1TAB
     Route: 048
     Dates: start: 20060726, end: 20081119

REACTIONS (1)
  - HEPATITIS [None]
